FAERS Safety Report 19013266 (Version 1)
Quarter: 2021Q1

REPORT INFORMATION
  Report Type: Spontaneous
  Country: US (occurrence: US)
  Receive Date: 20210316
  Receipt Date: 20210316
  Transmission Date: 20210420
  Serious: No
  Sender: FDA-Public Use
  Company Number: US-PFIZER INC-2021205948

PATIENT
  Age: 11 Year
  Sex: Male

DRUGS (1)
  1. RAPAMUNE [Suspect]
     Active Substance: SIROLIMUS
     Dosage: 3.5 MG, DAILY (0.5 MG, 7 TABLETS DAILY, 4IN AM AND 3 IN PM)

REACTIONS (1)
  - Off label use [Unknown]
